FAERS Safety Report 7935870-3 (Version None)
Quarter: 2011Q4

REPORT INFORMATION
  Report Type: 
  Country: None (occurrence: None)
  Receive Date: 20111123
  Receipt Date: 20111116
  Transmission Date: 20120403
  Serious: Yes (Death, Life-Threatening, Other)
  Sender: FDA-Public Use
  Company Number: US-CELGENEUS-163-21880-11083371

PATIENT
  Sex: Male
  Weight: 74.8 kg

DRUGS (10)
  1. FLUIDS [Concomitant]
     Route: 065
  2. REVLIMID [Suspect]
     Dosage: 10 MILLIGRAM
     Route: 048
     Dates: start: 20110711
  3. MELPHALAN HYDROCHLORIDE [Concomitant]
     Dosage: 12 MILLIGRAM
     Route: 048
     Dates: start: 20110709, end: 20110713
  4. DEXAMETHASONE [Concomitant]
     Route: 065
  5. REVLIMID [Suspect]
     Dosage: 10 MILLIGRAM
     Route: 048
     Dates: start: 20110501
  6. PRESSORS [Concomitant]
     Route: 065
  7. REVLIMID [Suspect]
     Dosage: 10 MILLIGRAM
     Route: 048
     Dates: start: 20100501
  8. REVLIMID [Suspect]
     Dosage: 15 MILLIGRAM
     Route: 048
     Dates: start: 20100501
  9. PREDNISONE TAB [Concomitant]
     Dosage: 80 MILLIGRAM
     Route: 048
     Dates: start: 20110709, end: 20110713
  10. ANTIBIOTICS [Concomitant]
     Route: 065

REACTIONS (4)
  - URINARY TRACT INFECTION [None]
  - SEPTIC SHOCK [None]
  - MYOCARDIAL INFARCTION [None]
  - MULTIPLE MYELOMA [None]
